FAERS Safety Report 21921564 (Version 2)
Quarter: 2023Q2

REPORT INFORMATION
  Report Type: Spontaneous
  Country: US (occurrence: US)
  Receive Date: 20230127
  Receipt Date: 20230628
  Transmission Date: 20230721
  Serious: Yes (Other)
  Sender: FDA-Public Use
  Company Number: US-JNJFOC-20230143922

PATIENT
  Age: 1 Year
  Sex: Male

DRUGS (4)
  1. TYLENOL REGULAR STRENGTH [Suspect]
     Active Substance: ACETAMINOPHEN
     Indication: Toothache
     Dosage: 3-6 TIMES PER WEEK, USED IN THREE OF THE TRIMESTER
     Route: 064
     Dates: start: 201409, end: 201506
  2. TYLENOL REGULAR STRENGTH [Suspect]
     Active Substance: ACETAMINOPHEN
     Indication: Headache
  3. TYLENOL EXTRA STRENGTH [Suspect]
     Active Substance: ACETAMINOPHEN
     Indication: Pain
     Dosage: 3-6 TIMES PER WEEK, USED IN THREE OF THE TRIMESTER
     Route: 064
     Dates: start: 201409, end: 201506
  4. ACETAMINOPHEN [Suspect]
     Active Substance: ACETAMINOPHEN
     Indication: Pain
     Dosage: 3-6 TIMES A WEEK, USED IN THREE OF THE TRIMESTER
     Route: 064
     Dates: start: 201409, end: 201506

REACTIONS (2)
  - Autism spectrum disorder [Unknown]
  - Foetal exposure during pregnancy [Unknown]

NARRATIVE: CASE EVENT DATE: 20170301
